FAERS Safety Report 11706700 (Version 1)
Quarter: 2015Q4

REPORT INFORMATION
  Report Type: Spontaneous
  Country: FR (occurrence: FR)
  Receive Date: 20151106
  Receipt Date: 20151106
  Transmission Date: 20160304
  Serious: Yes (Death, Life-Threatening, Other)
  Sender: FDA-Public Use
  Company Number: FR-BRISTOL-MYERS SQUIBB COMPANY-BMS-2015-075284

PATIENT
  Age: 68 Year
  Sex: Female

DRUGS (3)
  1. ELIQUIS [Suspect]
     Active Substance: APIXABAN
     Indication: CEREBROVASCULAR ACCIDENT PROPHYLAXIS
     Dosage: UNK
     Route: 048
     Dates: start: 20150929
  2. BISOPROLOL [Concomitant]
     Active Substance: BISOPROLOL
     Indication: ATRIAL FLUTTER
     Dosage: UNK
     Route: 048
     Dates: start: 20150929
  3. FLECAINE [Concomitant]
     Active Substance: FLECAINIDE
     Indication: ATRIAL FLUTTER
     Dosage: UNK
     Route: 048
     Dates: start: 20150929

REACTIONS (12)
  - Haemorrhage [Fatal]
  - Mydriasis [Fatal]
  - Transfusion [Unknown]
  - Cardio-respiratory arrest [Fatal]
  - Renal vessel disorder [Fatal]
  - Ischaemic hepatitis [Fatal]
  - Anaemia [Fatal]
  - Disseminated intravascular coagulation [Fatal]
  - Road traffic accident [Fatal]
  - Oliguria [Fatal]
  - Cervical vertebral fracture [Fatal]
  - Brain oedema [Fatal]

NARRATIVE: CASE EVENT DATE: 201510
